FAERS Safety Report 24672956 (Version 1)
Quarter: 2024Q4

REPORT INFORMATION
  Report Type: Spontaneous
  Country: JP (occurrence: JP)
  Receive Date: 20241128
  Receipt Date: 20241128
  Transmission Date: 20250115
  Serious: Yes (Other)
  Sender: UCB
  Company Number: JP-UCBJ-CD202411477UCBPHAPROD

PATIENT
  Sex: Male

DRUGS (1)
  1. LEVETIRACETAM [Suspect]
     Active Substance: LEVETIRACETAM
     Indication: Partial seizures
     Dosage: UNK
     Route: 048

REACTIONS (6)
  - Seizure [Unknown]
  - Chest pain [Unknown]
  - Headache [Unknown]
  - Nausea [Unknown]
  - Anger [Recovered/Resolved]
  - Depression [Recovered/Resolved]
